FAERS Safety Report 12916542 (Version 1)
Quarter: 2016Q4

REPORT INFORMATION
  Report Type: Spontaneous
  Country: US (occurrence: US)
  Receive Date: 20161104
  Receipt Date: 20161104
  Transmission Date: 20170207
  Serious: No
  Sender: FDA-Public Use
  Company Number: None

PATIENT
  Age: 26 Year
  Sex: Female
  Weight: 60.75 kg

DRUGS (2)
  1. MIRENA [Suspect]
     Active Substance: LEVONORGESTREL
     Indication: CONTRACEPTION
     Dosage: ?          QUANTITY:1 1;OTHER FREQUENCY:CONSTANT RELEASE;?
     Route: 067
     Dates: start: 20140901, end: 20161018
  2. VITAFUSION MULTIVITES - COMPLETE MULTIVITAMIN GUMMY [Concomitant]

REACTIONS (4)
  - Erythema [None]
  - Acne [None]
  - Skin disorder [None]
  - Skin irritation [None]

NARRATIVE: CASE EVENT DATE: 20161103
